FAERS Safety Report 5352308-3 (Version None)
Quarter: 2007Q2

REPORT INFORMATION
  Report Type: 
  Country: None (occurrence: None)
  Receive Date: 20070607
  Receipt Date: 20070607
  Transmission Date: 20071010
  Serious: No
  Sender: FDA-Public Use
  Company Number: None

PATIENT
  Age: 54 Year
  Sex: Female
  Weight: 73.0291 kg

DRUGS (1)
  1. CLONAZEPAM [Suspect]
     Indication: INSOMNIA
     Dates: start: 20050715, end: 20070606

REACTIONS (9)
  - ALOPECIA [None]
  - ARTHROPATHY [None]
  - GASTRIC DISORDER [None]
  - GINGIVAL PAIN [None]
  - MUSCLE DISORDER [None]
  - MUSCLE STRAIN [None]
  - PRURITUS [None]
  - RASH [None]
  - SKIN ULCER [None]
